FAERS Safety Report 5872738-0 (Version None)
Quarter: 2008Q3

REPORT INFORMATION
  Report Type: 
  Country: None (occurrence: None)
  Receive Date: 20080905
  Receipt Date: 20080829
  Transmission Date: 20090109
  Serious: Yes (Hospitalization, Other)
  Sender: FDA-Public Use
  Company Number: US-AMGEN-QUU304945

PATIENT
  Sex: Female

DRUGS (1)
  1. ENBREL [Suspect]
     Indication: PSORIASIS
     Route: 058
     Dates: start: 20060605

REACTIONS (5)
  - DIABETES MELLITUS [None]
  - INJECTION SITE PAIN [None]
  - OSTEOMYELITIS [None]
  - PNEUMONIA [None]
  - PSORIASIS [None]
